FAERS Safety Report 5364170-3 (Version None)
Quarter: 2007Q2

REPORT INFORMATION
  Report Type: 
  Country: None (occurrence: None)
  Receive Date: 20070530
  Receipt Date: 20070109
  Transmission Date: 20071010
  Serious: No
  Sender: FDA-Public Use
  Company Number: 2007PV028140

PATIENT
  Age: 49 Year
  Sex: Female
  Weight: 77.1115 kg

DRUGS (5)
  1. BYETTA [Suspect]
     Indication: GLUCOSE TOLERANCE IMPAIRED
     Dosage: 10 MCG;BID;SC ; 5 MCG;BID;SC
     Route: 058
     Dates: start: 20060901, end: 20061229
  2. BYETTA [Suspect]
     Indication: INSULIN RESISTANCE
     Dosage: 10 MCG;BID;SC ; 5 MCG;BID;SC
     Route: 058
     Dates: start: 20060901, end: 20061229
  3. BYETTA [Suspect]
     Indication: GLUCOSE TOLERANCE IMPAIRED
     Dosage: 10 MCG;BID;SC ; 5 MCG;BID;SC
     Route: 058
     Dates: start: 20061230
  4. BYETTA [Suspect]
     Indication: INSULIN RESISTANCE
     Dosage: 10 MCG;BID;SC ; 5 MCG;BID;SC
     Route: 058
     Dates: start: 20061230
  5. METFORMIN HCL [Concomitant]

REACTIONS (5)
  - DYSPEPSIA [None]
  - FATIGUE [None]
  - NAUSEA [None]
  - VOMITING [None]
  - WEIGHT DECREASED [None]
